FAERS Safety Report 13263393 (Version 2)
Quarter: 2017Q3

REPORT INFORMATION
  Report Type: Spontaneous
  Country: US (occurrence: US)
  Receive Date: 20170223
  Receipt Date: 20170908
  Transmission Date: 20171127
  Serious: No
  Sender: FDA-Public Use
  Company Number: US-LUNDBECK-DKLU2025437

PATIENT
  Sex: Female

DRUGS (1)
  1. NORTHERA [Suspect]
     Active Substance: DROXIDOPA
     Indication: PRODUCT USED FOR UNKNOWN INDICATION
     Route: 065
     Dates: start: 201506

REACTIONS (23)
  - Malaise [Unknown]
  - Syncope [Unknown]
  - Oedema peripheral [Unknown]
  - Migraine [Unknown]
  - Night sweats [Unknown]
  - Dry mouth [Unknown]
  - Palpitations [Unknown]
  - Increased tendency to bruise [Unknown]
  - Myalgia [Unknown]
  - Muscular weakness [Unknown]
  - Back pain [Unknown]
  - Poor quality sleep [Unknown]
  - Lymphadenopathy [Unknown]
  - Fatigue [Unknown]
  - Restless legs syndrome [Unknown]
  - Chest pain [Unknown]
  - Oropharyngeal pain [Unknown]
  - Chest discomfort [Unknown]
  - Dizziness [Unknown]
  - Headache [Unknown]
  - Dyspnoea [Unknown]
  - Depression [Unknown]
  - Sleep disorder [Unknown]
